FAERS Safety Report 9246094 (Version 2)
Quarter: 2013Q2

REPORT INFORMATION
  Report Type: Spontaneous
  Country: DE (occurrence: DE)
  Receive Date: 20130422
  Receipt Date: 20130426
  Transmission Date: 20140414
  Serious: Yes (Hospitalization)
  Sender: FDA-Public Use
  Company Number: DE-TEVA-397616GER

PATIENT
  Age: 13 Month
  Sex: Female
  Weight: 9.4 kg

DRUGS (2)
  1. CLOZAPINE [Suspect]
     Indication: ACCIDENTAL EXPOSURE TO PRODUCT
     Route: 048
  2. CEFACLOR [Concomitant]
     Indication: UPPER RESPIRATORY TRACT INFECTION
     Dosage: 3 DAYS OF TREATMENT
     Route: 048

REACTIONS (5)
  - Coma [Recovered/Resolved]
  - Respiratory failure [Recovered/Resolved]
  - Hypoxic-ischaemic encephalopathy [Recovered/Resolved]
  - Toxicity to various agents [Recovered/Resolved]
  - Accidental overdose [Recovered/Resolved]
